FAERS Safety Report 14485369 (Version 2)
Quarter: 2018Q1

REPORT INFORMATION
  Report Type: Spontaneous
  Country: VE (occurrence: VE)
  Receive Date: 20180205
  Receipt Date: 20180228
  Transmission Date: 20180509
  Serious: Yes (Death, Other)
  Sender: FDA-Public Use
  Company Number: VE-BAYER-2018-017076

PATIENT
  Age: 73 Year
  Sex: Female

DRUGS (4)
  1. L-CARNITINE [Concomitant]
     Active Substance: LEVOCARNITINE
  2. ALDACTONE [Concomitant]
     Active Substance: SPIRONOLACTONE
  3. NEXAVAR [Suspect]
     Active Substance: SORAFENIB
     Indication: HEPATOCELLULAR CARCINOMA
     Dosage: UNK
     Dates: start: 20160831, end: 20171213
  4. CIPROXINA [Concomitant]

REACTIONS (1)
  - Hepatocellular carcinoma [Fatal]
